FAERS Safety Report 25159621 (Version 3)
Quarter: 2025Q2

REPORT INFORMATION
  Report Type: Spontaneous
  Country: IT (occurrence: IT)
  Receive Date: 20250404
  Receipt Date: 20250526
  Transmission Date: 20250717
  Serious: Yes (Other)
  Sender: AMGEN
  Company Number: None

PATIENT
  Age: 73 Year
  Sex: Female

DRUGS (6)
  1. BEVACIZUMAB [Suspect]
     Active Substance: BEVACIZUMAB
     Indication: Age-related macular degeneration
     Route: 031
     Dates: start: 20240301, end: 20240301
  2. BEVACIZUMAB [Suspect]
     Active Substance: BEVACIZUMAB
     Route: 031
     Dates: start: 20240405, end: 20240405
  3. BEVACIZUMAB [Suspect]
     Active Substance: BEVACIZUMAB
     Route: 031
     Dates: start: 20240510, end: 20240510
  4. BEVACIZUMAB [Suspect]
     Active Substance: BEVACIZUMAB
     Route: 031
     Dates: start: 20240628, end: 20240628
  5. BEVACIZUMAB [Suspect]
     Active Substance: BEVACIZUMAB
     Route: 031
     Dates: start: 20240927, end: 20240927
  6. BEVACIZUMAB [Suspect]
     Active Substance: BEVACIZUMAB
     Route: 031
     Dates: start: 20241206, end: 20241206

REACTIONS (3)
  - Macular degeneration [Not Recovered/Not Resolved]
  - Drug ineffective for unapproved indication [Not Recovered/Not Resolved]
  - Off label use [Unknown]

NARRATIVE: CASE EVENT DATE: 20240301
